FAERS Safety Report 5236472-2 (Version None)
Quarter: 2007Q1

REPORT INFORMATION
  Report Type: 
  Country: None (occurrence: None)
  Receive Date: 20061208
  Receipt Date: 20060608
  Transmission Date: 20070707
  Serious: Yes (Other)
  Sender: FDA-Public Use
  Company Number: 2006UW12197

PATIENT
  Age: 52 Year
  Sex: Male
  Weight: 85.728 kg

DRUGS (15)
  1. CRESTOR [Suspect]
     Indication: HYPERCHOLESTEROLAEMIA
     Dosage: 40 MG PO
     Route: 048
     Dates: start: 20060501
  2. PLAVIX [Concomitant]
  3. ENBREL [Concomitant]
  4. ASPIRIN [Concomitant]
  5. CALCIUM [Concomitant]
  6. COZAAR [Concomitant]
  7. VITAMIN CAP [Concomitant]
  8. NEXIUM ORAL [Concomitant]
  9. FOLIC ACID [Concomitant]
  10. PAXIL [Concomitant]
  11. PREDNISONE [Concomitant]
  12. TRICOR [Concomitant]
  13. TOPROL-XL [Concomitant]
  14. OXYCODONE [Concomitant]
  15. SULFASALAZINE [Concomitant]

REACTIONS (2)
  - DECREASED APPETITE [None]
  - FATIGUE [None]
